FAERS Safety Report 10456081 (Version 1)
Quarter: 2014Q3

REPORT INFORMATION
  Report Type: Spontaneous
  Country: US (occurrence: None)
  Receive Date: 20140915
  Receipt Date: 20140915
  Transmission Date: 20150326
  Serious: Yes (Other)
  Sender: FDA-Public Use
  Company Number: None

PATIENT
  Age: 66 Year
  Sex: Female

DRUGS (1)
  1. LEVOTHYROXIN 75MCG [Suspect]
     Active Substance: LEVOTHYROXINE
     Indication: THYROID DISORDER
     Dosage: ONE, ONCE DAILY
     Dates: start: 20140616

REACTIONS (4)
  - Feeling abnormal [None]
  - Product substitution issue [None]
  - Malaise [None]
  - Therapeutic response changed [None]
